FAERS Safety Report 6137926-7 (Version None)
Quarter: 2009Q1

REPORT INFORMATION
  Report Type: 
  Country: None (occurrence: None)
  Receive Date: 20090331
  Receipt Date: 20090325
  Transmission Date: 20090719
  Serious: Yes (Life-Threatening, Hospitalization, Congenital Anomaly, Other)
  Sender: FDA-Public Use
  Company Number: US-PFIZER INC-2007095334

PATIENT
  Sex: Male
  Weight: 3.8 kg

DRUGS (8)
  1. ZOLOFT [Suspect]
  2. INSULIN [Concomitant]
     Indication: TYPE 2 DIABETES MELLITUS
  3. SYNTHROID [Concomitant]
     Indication: HYPOTHYROIDISM
  4. ADVAIR HFA [Concomitant]
  5. CLARITIN-D [Concomitant]
  6. LEVOTHYROXINE [Concomitant]
  7. SINGULAIR [Concomitant]
  8. ACTOS [Concomitant]
     Indication: TYPE 2 DIABETES MELLITUS

REACTIONS (7)
  - ASTHMA [None]
  - DEVELOPMENTAL DELAY [None]
  - DRUG EXPOSURE DURING PREGNANCY [None]
  - FALLOT'S TETRALOGY [None]
  - GRAND MAL CONVULSION [None]
  - PULMONARY ARTERY ATRESIA [None]
  - RESPIRATORY DISTRESS [None]
